FAERS Safety Report 5509553-3 (Version None)
Quarter: 2007Q4

REPORT INFORMATION
  Report Type: 
  Country: None (occurrence: None)
  Receive Date: 20071031
  Receipt Date: 20070829
  Transmission Date: 20080405
  Serious: No
  Sender: FDA-Public Use
  Company Number: 2007PV033373

PATIENT
  Age: 50 Year
  Sex: Male

DRUGS (4)
  1. SYMLIN [Suspect]
     Indication: TYPE 2 DIABETES MELLITUS
     Dosage: 60 MCG; SC
     Route: 058
     Dates: start: 20070828
  2. NOVOLOG [Concomitant]
  3. LANTUS [Concomitant]
  4. STEROIDS [Concomitant]

REACTIONS (1)
  - BLOOD GLUCOSE INCREASED [None]
